FAERS Safety Report 20974735 (Version 1)
Quarter: 2022Q2

REPORT INFORMATION
  Report Type: Spontaneous
  Country: US (occurrence: None)
  Receive Date: 20220617
  Receipt Date: 20220617
  Transmission Date: 20220721
  Serious: Yes (unspecified)
  Sender: FDA-Public Use
  Company Number: None

PATIENT
  Age: 26 Year
  Sex: Female
  Weight: 74.5 kg

DRUGS (1)
  1. RITUXAN [Suspect]
     Active Substance: RITUXIMAB
     Indication: Immune thrombocytopenia
     Dosage: OTHER FREQUENCY : WEEKLY;?
     Route: 042
     Dates: start: 20220616

REACTIONS (3)
  - Nausea [None]
  - Eating disorder [None]
  - Chills [None]

NARRATIVE: CASE EVENT DATE: 20220616
